FAERS Safety Report 10681798 (Version 4)
Quarter: 2015Q2

REPORT INFORMATION
  Report Type: Spontaneous
  Country: US (occurrence: None)
  Receive Date: 20141224
  Receipt Date: 20150630
  Transmission Date: 20150821
  Serious: Yes (Hospitalization)
  Sender: FDA-Public Use
  Company Number: US-001238

PATIENT
  Age: 58 Year
  Sex: Female
  Weight: 72.49 kg

DRUGS (8)
  1. VALIUM [Concomitant]
     Active Substance: DIAZEPAM
  2. AMBIEN [Concomitant]
     Active Substance: ZOLPIDEM TARTRATE
  3. NORCO [Concomitant]
     Active Substance: ACETAMINOPHEN\HYDROCODONE BITARTRATE
  4. GATTEX [Suspect]
     Active Substance: TEDUGLUTIDE\WATER
     Indication: SHORT-BOWEL SYNDROME
     Route: 058
     Dates: start: 20140716, end: 20141206
  5. ZOLOFT [Concomitant]
     Active Substance: SERTRALINE HYDROCHLORIDE
  6. SINEQUAN [Concomitant]
     Active Substance: DOXEPIN HYDROCHLORIDE
  7. SOLUTIONS FOR PARENTERAL NUTRITION [Concomitant]
     Active Substance: AMINO ACIDS\DEXTROSE\ELECTROLYTES NOS
  8. PERCOCET [Concomitant]
     Active Substance: ACETAMINOPHEN\OXYCODONE HYDROCHLORIDE

REACTIONS (13)
  - Abdominal pain upper [None]
  - Laboratory test abnormal [None]
  - Abdominal pain [None]
  - Intestinal obstruction [None]
  - Drug dose omission [None]
  - Cholelithiasis [None]
  - Urine output decreased [None]
  - Gastrointestinal stoma complication [None]
  - Gastrointestinal stoma output increased [None]
  - Dehydration [None]
  - Weight decreased [None]
  - Inappropriate schedule of drug administration [None]
  - Multiple allergies [None]

NARRATIVE: CASE EVENT DATE: 20140902
